FAERS Safety Report 20434205 (Version 2)
Quarter: 2023Q1

REPORT INFORMATION
  Report Type: Report from Study
  Country: EG (occurrence: EG)
  Receive Date: 20220206
  Receipt Date: 20230124
  Transmission Date: 20230418
  Serious: No
  Sender: FDA-Public Use
  Company Number: EG-NOVARTISPH-NVSC2022EG021325

PATIENT
  Age: 40 Year
  Sex: Male

DRUGS (4)
  1. COSENTYX [Suspect]
     Active Substance: SECUKINUMAB
     Indication: Psoriasis
     Dosage: 150 MG, QMO (ONCE PER WEEK FOR A DURATION OF 4 WEEKS)
     Route: 058
     Dates: start: 20190915
  2. COSENTYX [Suspect]
     Active Substance: SECUKINUMAB
     Dosage: 150 MG, QMO (MID OF 2020)
     Route: 058
     Dates: start: 2020
  3. COSENTYX [Suspect]
     Active Substance: SECUKINUMAB
     Dosage: 1 DOSAGE FORM (1 PREFILLED PEN EVERY 1-2 MONTHS)
     Route: 058
     Dates: start: 20210101
  4. COSENTYX [Suspect]
     Active Substance: SECUKINUMAB
     Dosage: 1 DOSAGE FORM (150 MG EVERY 45 DAYS THEN ONE PEN EVERY THREE MONTHS AFTER FOLLOWING THE PREVIOUSLY M
     Route: 065
     Dates: start: 202105

REACTIONS (3)
  - Psoriasis [Recovering/Resolving]
  - Inappropriate schedule of product administration [Unknown]
  - Product prescribing error [Unknown]

NARRATIVE: CASE EVENT DATE: 20190915
